FAERS Safety Report 21099061 (Version 3)
Quarter: 2022Q3

REPORT INFORMATION
  Report Type: Spontaneous
  Country: HR (occurrence: None)
  Receive Date: 20220719
  Receipt Date: 20220801
  Transmission Date: 20221027
  Serious: Yes (Other)
  Sender: FDA-Public Use
  Company Number: HR-ROCHE-3135711

PATIENT
  Age: 49 Year
  Sex: Female

DRUGS (5)
  1. EVRYSDI [Suspect]
     Active Substance: RISDIPLAM
     Indication: Spinal muscular atrophy
     Route: 048
     Dates: start: 202201, end: 202207
  2. ESCITALOPRAM [Concomitant]
     Active Substance: ESCITALOPRAM OXALATE
  3. ATORVASTATIN [Concomitant]
     Active Substance: ATORVASTATIN
  4. ASPIRIN [Concomitant]
     Active Substance: ASPIRIN
  5. INDAPAMIDE [Concomitant]
     Active Substance: INDAPAMIDE
     Dosage: EVERY OTHER DAY

REACTIONS (4)
  - Anaemia [Recovering/Resolving]
  - Heavy menstrual bleeding [Unknown]
  - Faeces hard [Unknown]
  - Haematochezia [Unknown]

NARRATIVE: CASE EVENT DATE: 20220601
